FAERS Safety Report 9437451 (Version 1)
Quarter: 2013Q3

REPORT INFORMATION
  Report Type: Spontaneous
  Country: US (occurrence: US)
  Receive Date: 20130802
  Receipt Date: 20130802
  Transmission Date: 20140515
  Serious: No
  Sender: FDA-Public Use
  Company Number: US-BAXTER-2012BAX019402

PATIENT
  Sex: Female
  Weight: 51 kg

DRUGS (5)
  1. BUMINATE [Suspect]
     Indication: TYPE IIA HYPERLIPIDAEMIA
     Route: 042
  2. BUMINATE [Suspect]
     Indication: OFF LABEL USE
  3. ROSUVASTATIN CALCIUM [Suspect]
     Indication: PRODUCT USED FOR UNKNOWN INDICATION
     Route: 065
  4. FISH OIL [Concomitant]
     Indication: PRODUCT USED FOR UNKNOWN INDICATION
     Route: 065
  5. ERGOCALCIFEROL/ASCORBIC ACID/PYRIDOXINE HYDROCHLORIDE/THIAMINE HYDROCHLORIDE/RETINOL/RIBOFLAVIN/NICO [Concomitant]
     Indication: PRODUCT USED FOR UNKNOWN INDICATION
     Route: 065

REACTIONS (6)
  - Hypersensitivity [Recovered/Resolved]
  - Cough [Recovered/Resolved]
  - Respiratory disorder [Recovered/Resolved]
  - Dysgeusia [Recovered/Resolved]
  - Nausea [Recovered/Resolved]
  - Vomiting [Recovered/Resolved]
